FAERS Safety Report 8735672 (Version 2)
Quarter: 2013Q2

REPORT INFORMATION
  Report Type: Spontaneous
  Country: BR (occurrence: BR)
  Receive Date: 20120822
  Receipt Date: 20130526
  Transmission Date: 20140414
  Serious: Yes (Hospitalization)
  Sender: FDA-Public Use
  Company Number: BR-US-EMD SERONO, INC.-7142746

PATIENT
  Age: 22 Year
  Sex: Female

DRUGS (10)
  1. REBIF [Suspect]
     Indication: RELAPSING-REMITTING MULTIPLE SCLEROSIS
     Route: 058
     Dates: start: 20120508
  2. SOLU MEDROL [Suspect]
     Indication: HYPOAESTHESIA
  3. SOLU MEDROL [Suspect]
     Indication: ASTHENIA
  4. CLEXANE [Suspect]
     Indication: ASTHENIA
  5. CLEXANE [Suspect]
     Indication: HYPOAESTHESIA
  6. VENLAFAXINE [Concomitant]
     Indication: PRODUCT USED FOR UNKNOWN INDICATION
  7. CARBAMAZEPINE [Concomitant]
     Indication: PRODUCT USED FOR UNKNOWN INDICATION
  8. FLUOXETINE [Concomitant]
     Indication: PRODUCT USED FOR UNKNOWN INDICATION
  9. DORFLEX [Concomitant]
     Indication: PRODUCT USED FOR UNKNOWN INDICATION
  10. CLOMIPRAMINE [Concomitant]
     Indication: PRODUCT USED FOR UNKNOWN INDICATION

REACTIONS (6)
  - Hypoaesthesia [Recovered/Resolved]
  - Asthenia [Recovered/Resolved]
  - Migraine [Not Recovered/Not Resolved]
  - Feeling hot [Unknown]
  - Hyperaemia [Recovered/Resolved]
  - Nervousness [Unknown]
